FAERS Safety Report 4506226-0 (Version None)
Quarter: 2004Q4

REPORT INFORMATION
  Report Type: 
  Country: None (occurrence: None)
  Receive Date: 20041119
  Receipt Date: 20041109
  Transmission Date: 20050328
  Serious: Yes (Death, Other)
  Sender: FDA-Public Use
  Company Number: CN-MERCK-0411CHN00046

PATIENT
  Age: 43 Year
  Sex: Male

DRUGS (8)
  1. VIOXX [Suspect]
     Indication: JUVENILE ARTHRITIS
     Route: 048
     Dates: start: 20040906, end: 20040908
  2. VIOXX [Suspect]
     Route: 048
     Dates: start: 20040909, end: 20040911
  3. CEFAZOLIN [Concomitant]
     Indication: PNEUMONIA MYCOPLASMAL
     Route: 042
     Dates: start: 20040801, end: 20040901
  4. [THERAPY UNSPECIFIED] [Concomitant]
     Indication: PNEUMONIA MYCOPLASMAL
     Route: 042
     Dates: start: 20040801, end: 20040901
  5. OFLOXACIN [Concomitant]
     Indication: PNEUMONIA MYCOPLASMAL
     Route: 042
     Dates: start: 20040801, end: 20040901
  6. [THERAPY UNSPECIFIED] [Concomitant]
     Route: 042
     Dates: start: 20040801, end: 20040901
  7. DEXAMETHASONE [Concomitant]
     Indication: PNEUMONIA MYCOPLASMAL
     Route: 065
     Dates: start: 20040901, end: 20040901
  8. AZITHROMYCIN [Concomitant]
     Indication: PNEUMONIA MYCOPLASMAL
     Route: 065
     Dates: start: 20040901, end: 20040901

REACTIONS (7)
  - ACUTE RESPIRATORY DISTRESS SYNDROME [None]
  - HEPATIC FAILURE [None]
  - HEPATITIS [None]
  - MYOCARDITIS [None]
  - PNEUMONIA PRIMARY ATYPICAL [None]
  - RENAL FAILURE [None]
  - RESPIRATORY FAILURE [None]
